FAERS Safety Report 9905290 (Version 1)
Quarter: 2014Q1

REPORT INFORMATION
  Report Type: Spontaneous
  Country: AT (occurrence: AT)
  Receive Date: 20140218
  Receipt Date: 20140218
  Transmission Date: 20141002
  Serious: Yes (Life-Threatening, Hospitalization)
  Sender: FDA-Public Use
  Company Number: AT-TEVA-462129ISR

PATIENT
  Age: 45 Year
  Sex: Female
  Weight: 66 kg

DRUGS (1)
  1. COPAXONE 20 MG/ML INJEKTIONSL?SUNG IN EINER FERTIGSPRITZE [Suspect]
     Indication: MULTIPLE SCLEROSIS
     Dosage: 1 DOSAGE FORMS DAILY;
     Route: 058
     Dates: start: 20110713

REACTIONS (1)
  - Pancreatitis necrotising [Recovered/Resolved]
